FAERS Safety Report 12459306 (Version 4)
Quarter: 2016Q3

REPORT INFORMATION
  Report Type: Spontaneous
  Country: JP (occurrence: JP)
  Receive Date: 20160613
  Receipt Date: 20160725
  Transmission Date: 20161109
  Serious: No
  Sender: FDA-Public Use
  Company Number: JP-GLAXOSMITHKLINE-JP2016JPN082520

PATIENT
  Age: 17 Year
  Sex: Female

DRUGS (2)
  1. DUAC GEL [Suspect]
     Active Substance: BENZOYL PEROXIDE\CLINDAMYCIN PHOSPHATE
     Indication: ACNE
     Dosage: 0.5 G, QD
     Route: 050
     Dates: start: 20160604, end: 20160605
  2. GRACEPTOR [Concomitant]
     Active Substance: TACROLIMUS
     Dosage: 1 DF, TID

REACTIONS (4)
  - Dermatitis contact [Recovered/Resolved]
  - Face oedema [Recovered/Resolved]
  - Erythema [Recovered/Resolved]
  - Pruritus [Recovered/Resolved]

NARRATIVE: CASE EVENT DATE: 20160606
